FAERS Safety Report 9163590 (Version 1)
Quarter: 2013Q1

REPORT INFORMATION
  Report Type: Other
  Country: GB (occurrence: GB)
  Receive Date: 20130314
  Receipt Date: 20130314
  Transmission Date: 20140127
  Serious: Yes (Other)
  Sender: FDA-Public Use
  Company Number: GB-WATSON-2013-03675

PATIENT
  Age: 64 Year
  Sex: Male

DRUGS (5)
  1. LEVETIRACETAM (UNKNOWN) [Suspect]
     Indication: EPILEPSY
     Dosage: 500 MG, BID  500 MG, 2X/DAY (MORNING AND EVENING)
     Route: 065
  2. PHENYTOIN [Suspect]
     Indication: EPILEPSY
     Dosage: 250 MG, SINGLE
     Route: 065
  3. MYSOLINE [Suspect]
     Indication: EPILEPSY
     Dosage: 250 MG, DAILY
     Route: 065
  4. CLOBAZAM [Concomitant]
     Indication: PRODUCT USED FOR UNKNOWN INDICATION
     Dosage: 10 MG, TID 10 MG, 3X/DAY
     Route: 065
  5. CLOBAZAM [Concomitant]
     Dosage: 10 MG, 1X/DAY
     Route: 065

REACTIONS (5)
  - Toxicity to various agents [Unknown]
  - Hypertension [Unknown]
  - Cardiac disorder [Unknown]
  - Dizziness [Unknown]
  - Headache [Unknown]
